FAERS Safety Report 5281282-3 (Version None)
Quarter: 2007Q1

REPORT INFORMATION
  Report Type: 
  Country: None (occurrence: None)
  Receive Date: 20061221
  Receipt Date: 20060908
  Transmission Date: 20070707
  Serious: No
  Sender: FDA-Public Use
  Company Number: SP00975

PATIENT
  Age: 48 Year
  Sex: Female

DRUGS (2)
  1. XIFAXAN [Suspect]
     Indication: OVERGROWTH BACTERIAL
     Dosage: VARIABLE DOSING (200 MG), ORAL
     Route: 048
     Dates: start: 20060908, end: 20060927
  2. POLYETHYLENE GLYCOL [Concomitant]

REACTIONS (6)
  - ABDOMINAL DISTENSION [None]
  - ABDOMINAL PAIN LOWER [None]
  - ABDOMINAL PAIN UPPER [None]
  - DIZZINESS [None]
  - DRUG INTERACTION [None]
  - STOMACH DISCOMFORT [None]
